FAERS Safety Report 7532317-6 (Version None)
Quarter: 2011Q2

REPORT INFORMATION
  Report Type: 
  Country: None (occurrence: None)
  Receive Date: 20110608
  Receipt Date: 20110530
  Transmission Date: 20111010
  Serious: Yes (Hospitalization)
  Sender: FDA-Public Use
  Company Number: JP-MERCK-1105USA02012

PATIENT
  Age: 74 Year
  Sex: Female

DRUGS (12)
  1. HYZAAR [Suspect]
     Indication: HYPERTENSION
     Route: 048
     Dates: end: 20110505
  2. FOSAMAX [Suspect]
     Indication: OSTEOPOROSIS
     Route: 048
     Dates: end: 20110505
  3. LANSOPRAZOLE [Concomitant]
     Dosage: DIVIDED DOSE FREQUENCY UNKNOWN
     Route: 047
  4. VOGLIBOSE [Concomitant]
     Indication: DIABETES MELLITUS
     Dosage: DIVIDED DOSE FREQUENCY UNKNOWN
     Route: 048
  5. TROXSIN [Concomitant]
     Dosage: DAILY DOSAGE UNKNOWN
     Route: 048
  6. PREDNISOLONE [Concomitant]
     Route: 048
     Dates: start: 20110509
  7. ACTOS [Concomitant]
     Indication: DIABETES MELLITUS
     Dosage: DIVIDED DOSE FREQUENCY UNKNOWN
     Route: 048
  8. ASPIRIN [Concomitant]
     Dosage: DAILY DOSAGE UNKNOWN
     Route: 048
  9. LAMISIL [Suspect]
     Indication: ONYCHOMYCOSIS
     Dosage: DAILY DOSAGE UNKNOWN
     Route: 048
     Dates: end: 20110505
  10. AMLODIPINE BESYLATE [Suspect]
     Route: 048
     Dates: start: 20110509
  11. PREDNISOLONE [Concomitant]
     Dosage: DIVIDED DOSE FREQUENCY UNKNOWN
     Route: 048
     Dates: end: 20110505
  12. AMLODIPINE BESYLATE [Suspect]
     Indication: HYPERTENSION
     Route: 048
     Dates: end: 20110505

REACTIONS (1)
  - RHABDOMYOLYSIS [None]
